FAERS Safety Report 7703834-0 (Version None)
Quarter: 2011Q3

REPORT INFORMATION
  Report Type: 
  Country: None (occurrence: None)
  Receive Date: 20110823
  Receipt Date: 20110815
  Transmission Date: 20111222
  Serious: Yes (Other)
  Sender: FDA-Public Use
  Company Number: US-ROCHE-796990

PATIENT

DRUGS (2)
  1. 2-METHOXYESTRADIOL [Suspect]
     Indication: CARCINOID TUMOUR
     Route: 048
  2. BEVACIZUMAB [Suspect]
     Indication: CARCINOID TUMOUR
     Route: 042

REACTIONS (10)
  - HYPERBILIRUBINAEMIA [None]
  - HEADACHE [None]
  - SYNCOPE [None]
  - INSOMNIA [None]
  - HYPERTENSION [None]
  - DIARRHOEA [None]
  - GASTROINTESTINAL HAEMORRHAGE [None]
  - HYPOXIA [None]
  - DEEP VEIN THROMBOSIS [None]
  - CHOLANGITIS [None]
